FAERS Safety Report 6220273-2 (Version None)
Quarter: 2009Q2

REPORT INFORMATION
  Report Type: 
  Country: None (occurrence: None)
  Receive Date: 20090605
  Receipt Date: 20090526
  Transmission Date: 20091009
  Serious: Yes (Death, Hospitalization, Disabling)
  Sender: FDA-Public Use
  Company Number: 2008-02030

PATIENT
  Age: 75 Year
  Sex: Female
  Weight: 52 kg

DRUGS (5)
  1. VELCADE [Suspect]
     Indication: MULTIPLE MYELOMA
     Dosage: 1.8 MG UNK INTRAVENOUS
     Route: 042
     Dates: start: 20080513, end: 20080516
  2. DEXAMETHASONE [Concomitant]
  3. SULFAMETHOXAZOLE AND TRIMETHOPRIM [Concomitant]
  4. LANSOPRAZOLE [Concomitant]
  5. MYCOSYST [Concomitant]

REACTIONS (11)
  - ACTIVITIES OF DAILY LIVING IMPAIRED [None]
  - AMYLOIDOSIS [None]
  - CONDITION AGGRAVATED [None]
  - DEPRESSED LEVEL OF CONSCIOUSNESS [None]
  - HAEMATOTOXICITY [None]
  - JOINT CONTRACTURE [None]
  - MALIGNANT NEOPLASM PROGRESSION [None]
  - MULTIPLE MYELOMA [None]
  - PERIPHERAL SENSORIMOTOR NEUROPATHY [None]
  - PLATELET COUNT DECREASED [None]
  - SPINAL OSTEOARTHRITIS [None]
